APPROVED DRUG PRODUCT: CLOBETASOL PROPIONATE
Active Ingredient: CLOBETASOL PROPIONATE
Strength: 0.05%
Dosage Form/Route: SOLUTION;TOPICAL
Application: A075224 | Product #001 | TE Code: AT
Applicant: SUN PHARMA CANADA INC
Approved: Nov 16, 1998 | RLD: No | RS: Yes | Type: RX